FAERS Safety Report 14704197 (Version 1)
Quarter: 2018Q2

REPORT INFORMATION
  Report Type: Spontaneous
  Country: US (occurrence: US)
  Receive Date: 20180402
  Receipt Date: 20180402
  Transmission Date: 20180711
  Serious: No
  Sender: FDA-Public Use
  Company Number: US-ALLERGAN-2014-002549

PATIENT
  Age: 67 Year
  Sex: Female

DRUGS (10)
  1. 6-MP [Concomitant]
     Active Substance: MERCAPTOPURINE
     Indication: CROHN^S DISEASE
     Route: 065
  2. METHOTREXATE. [Concomitant]
     Active Substance: METHOTREXATE
     Indication: CROHN^S DISEASE
     Dosage: UNK, UNKNOWN
     Route: 065
  3. HUMIRA [Concomitant]
     Active Substance: ADALIMUMAB
     Indication: CROHN^S DISEASE
     Route: 065
  4. ASACOL HD [Suspect]
     Active Substance: MESALAMINE
     Indication: COLITIS ULCERATIVE
     Dosage: UNK
  5. CORTICOSTEROIDS [Concomitant]
     Active Substance: CORTICOSTEROID NOS
     Indication: CROHN^S DISEASE
     Route: 065
  6. FOLIC ACID. [Concomitant]
     Active Substance: FOLIC ACID
     Indication: CROHN^S DISEASE
     Dosage: UNK, UNKNOWN
     Route: 065
  7. ASACOL HD [Suspect]
     Active Substance: MESALAMINE
     Indication: COELIAC DISEASE
  8. ASACOL HD [Suspect]
     Active Substance: MESALAMINE
     Indication: CROHN^S DISEASE
     Dosage: 2400 MG, DAILY
     Route: 048
     Dates: start: 2011
  9. VANCOMYCIN [Concomitant]
     Active Substance: VANCOMYCIN
     Indication: CROHN^S DISEASE
     Route: 065
  10. PROBIOTICS NOS [Concomitant]
     Active Substance: PROBIOTICS NOS
     Indication: CROHN^S DISEASE
     Route: 065

REACTIONS (5)
  - Off label use [Unknown]
  - Diarrhoea [Not Recovered/Not Resolved]
  - Medication residue present [Recovering/Resolving]
  - Wrong technique in product usage process [Unknown]
  - Drug ineffective [Unknown]

NARRATIVE: CASE EVENT DATE: 201308
